FAERS Safety Report 17948788 (Version 5)
Quarter: 2022Q4

REPORT INFORMATION
  Report Type: Report from Study
  Country: US (occurrence: US)
  Receive Date: 20200625
  Receipt Date: 20221212
  Transmission Date: 20230113
  Serious: No
  Sender: FDA-Public Use
  Company Number: None

PATIENT
  Sex: Female

DRUGS (1)
  1. COSENTYX [Suspect]
     Active Substance: SECUKINUMAB
     Indication: Psoriasis
     Dosage: 300 MG, QW (BENEATH THE SKIN)
     Route: 058

REACTIONS (3)
  - Psoriasis [Unknown]
  - Anxiety [Unknown]
  - Product dose omission issue [Unknown]
